FAERS Safety Report 20739484 (Version 2)
Quarter: 2022Q3

REPORT INFORMATION
  Report Type: Spontaneous
  Country: JP (occurrence: JP)
  Receive Date: 20220422
  Receipt Date: 20220711
  Transmission Date: 20221027
  Serious: Yes (Death, Hospitalization, Other)
  Sender: FDA-Public Use
  Company Number: JP-MALLINCKRODT-T202201921

PATIENT
  Age: 74 Year
  Sex: Male
  Weight: 53 kg

DRUGS (12)
  1. OFIRMEV [Suspect]
     Active Substance: ACETAMINOPHEN
     Indication: Pyrexia
     Dosage: 500 MILLIGRAM, QD
     Route: 042
     Dates: start: 20210630, end: 20210701
  2. PREDNISOLONE [Concomitant]
     Active Substance: PREDNISOLONE
     Indication: Product used for unknown indication
     Dosage: 500 MILLIGRAM, QD
     Route: 065
  3. ALBUMIN HUMAN [Concomitant]
     Active Substance: ALBUMIN HUMAN
     Indication: Product used for unknown indication
     Dosage: 100 MILLILITER, QD
     Route: 041
     Dates: start: 20210628, end: 20210630
  4. NAFAMOSTAT MESYLATE [Concomitant]
     Active Substance: NAFAMOSTAT MESYLATE
     Indication: Product used for unknown indication
     Dosage: 200 MILLIGRAM, QD
     Route: 041
     Dates: start: 20210701
  5. CALCIUM GLUCONATE [Concomitant]
     Active Substance: CALCIUM GLUCONATE
     Indication: Product used for unknown indication
     Dosage: 10 DOSAGE FORM, QD
     Route: 041
     Dates: start: 20220701
  6. LANSOPRAZOLE [Concomitant]
     Active Substance: LANSOPRAZOLE
     Indication: Product used for unknown indication
     Dosage: 30 MILLIGRAM, QD, 1A
     Route: 041
     Dates: start: 20210702
  7. NOREPINEPHRINE [Concomitant]
     Active Substance: NOREPINEPHRINE
     Indication: Product used for unknown indication
     Dosage: 3 MILLILITER, QD, 3A
     Route: 041
     Dates: start: 20210702
  8. CUPRIC SULFATE\FERRIC CHLORIDE\MANGANESE CHLORIDE\POTASSIUM IODIDE\ZIN [Concomitant]
     Active Substance: CUPRIC SULFATE\FERRIC CHLORIDE\MANGANESE CHLORIDE\POTASSIUM IODIDE\ZINC SULFATE
     Indication: Product used for unknown indication
     Dosage: 2 MILLILITER, QD, 1A
     Route: 041
     Dates: start: 20210702
  9. SODIUM PHOSPHATE [Concomitant]
     Active Substance: SODIUM PHOSPHATE
     Indication: Product used for unknown indication
     Dosage: QD, 1A, 10MG/2ML
     Route: 041
     Dates: start: 20210705
  10. FAMOTIDINE [Concomitant]
     Active Substance: FAMOTIDINE
     Indication: Product used for unknown indication
     Dosage: 20 MILLIGRAM, QD, 1A
     Route: 041
     Dates: start: 20210702
  11. POLARAMINE [Concomitant]
     Active Substance: DEXCHLORPHENIRAMINE MALEATE
     Indication: Product used for unknown indication
     Dosage: 5 MILLIGRAM, QD, 1A
     Route: 041
     Dates: start: 20210702
  12. DEXTROSE [Concomitant]
     Active Substance: DEXTROSE
     Indication: Product used for unknown indication
     Dosage: 500 MILLILITER, QD, 1A
     Route: 041
     Dates: start: 20210702

REACTIONS (1)
  - Drug reaction with eosinophilia and systemic symptoms [Fatal]

NARRATIVE: CASE EVENT DATE: 20210701
